FAERS Safety Report 5566537-7 (Version None)
Quarter: 2007Q4

REPORT INFORMATION
  Report Type: 
  Country: None (occurrence: None)
  Receive Date: 20071219
  Receipt Date: 20071212
  Transmission Date: 20080405
  Serious: Yes (Hospitalization)
  Sender: FDA-Public Use
  Company Number: DE-JNJFOC-20070601430

PATIENT
  Age: 76 Year
  Sex: Female
  Weight: 64 kg

DRUGS (4)
  1. DOXORUBICIN HCL [Suspect]
     Dosage: 50 MG EVERY MORNING
     Route: 042
  2. DOXORUBICIN HCL [Suspect]
     Indication: BREAST CANCER METASTATIC
     Dosage: 50 MG EVERY MORNING
     Route: 042
  3. FOSINORM [Concomitant]
     Indication: HYPERTENSION
     Route: 065
  4. PANTOZOLE [Concomitant]
     Indication: GASTROINTESTINAL DISORDER THERAPY
     Route: 065

REACTIONS (3)
  - DIZZINESS [None]
  - VESTIBULAR NEURONITIS [None]
  - VOMITING [None]
